FAERS Safety Report 5061209-X (Version None)
Quarter: 2006Q3

REPORT INFORMATION
  Report Type: 
  Country: None (occurrence: None)
  Receive Date: 20060721
  Receipt Date: 20060721
  Transmission Date: 20061208
  Serious: Yes (Hospitalization)
  Sender: FDA-Public Use
  Company Number: None

PATIENT
  Sex: Male
  Weight: 83.9154 kg

DRUGS (4)
  1. METHADONE HCL [Suspect]
     Indication: HEADACHE
     Dosage: 10MG/1 PER 12HRS ORAL
     Route: 048
     Dates: start: 20030101, end: 20060713
  2. METHADONE HCL [Suspect]
     Indication: INTERVERTEBRAL DISC PROTRUSION
     Dosage: 10MG/1 PER 12HRS ORAL
     Route: 048
     Dates: start: 20030101, end: 20060713
  3. METHADONE HCL [Suspect]
     Indication: MUSCULOSKELETAL PAIN
     Dosage: 10MG/1 PER 12HRS ORAL
     Route: 048
     Dates: start: 20030101, end: 20060713
  4. METHADONE HCL [Suspect]
     Indication: NECK PAIN
     Dosage: 10MG/1 PER 12HRS ORAL
     Route: 048
     Dates: start: 20030101, end: 20060713

REACTIONS (8)
  - ABDOMINAL PAIN [None]
  - ANXIETY [None]
  - CHEST PAIN [None]
  - DYSPHORIA [None]
  - HEADACHE [None]
  - HYPERHIDROSIS [None]
  - INSOMNIA [None]
  - TINNITUS [None]
